FAERS Safety Report 23945805 (Version 1)
Quarter: 2024Q2

REPORT INFORMATION
  Report Type: Spontaneous
  Country: CN (occurrence: CN)
  Receive Date: 20240606
  Receipt Date: 20240606
  Transmission Date: 20240715
  Serious: Yes (Hospitalization, Other)
  Sender: FDA-Public Use
  Company Number: CN-009507513-2406CHN000398

PATIENT
  Age: 58 Year
  Sex: Male
  Weight: 55 kg

DRUGS (6)
  1. KEYTRUDA [Suspect]
     Active Substance: PEMBROLIZUMAB
     Indication: Lung adenocarcinoma stage IV
     Dosage: 200 MG D1, ONCE
     Route: 041
     Dates: start: 20240430, end: 20240430
  2. PEMETREXED [Suspect]
     Active Substance: PEMETREXED
     Indication: Lung adenocarcinoma stage IV
     Dosage: UNK
  3. PEMETREXED [Suspect]
     Active Substance: PEMETREXED
     Dosage: 860 MG D1
     Dates: start: 20240430
  4. CARBOPLATIN [Suspect]
     Active Substance: CARBOPLATIN
     Indication: Lung adenocarcinoma stage IV
     Dosage: UNK
  5. CARBOPLATIN [Suspect]
     Active Substance: CARBOPLATIN
     Dosage: 550 MG D1
     Dates: start: 20240430
  6. SODIUM CHLORIDE [Concomitant]
     Active Substance: SODIUM CHLORIDE
     Indication: Medication dilution
     Dosage: 100 ML, ONCE
     Route: 041
     Dates: start: 20240430, end: 20240430

REACTIONS (4)
  - Diffuse panbronchiolitis [Unknown]
  - Pneumonia [Unknown]
  - Malignant neoplasm progression [Unknown]
  - Pneumonitis [Not Recovered/Not Resolved]

NARRATIVE: CASE EVENT DATE: 20240506
